FAERS Safety Report 16571520 (Version 1)
Quarter: 2019Q3

REPORT INFORMATION
  Report Type: Spontaneous
  Country: US (occurrence: US)
  Receive Date: 20190713
  Receipt Date: 20190713
  Transmission Date: 20191004
  Serious: Yes (Other)
  Sender: FDA-Public Use
  Company Number: None

PATIENT
  Age: 52 Year
  Sex: Female

DRUGS (11)
  1. VITAMIN D [Concomitant]
     Active Substance: VITAMIN D NOS
  2. PROPRANOLOL [Concomitant]
     Active Substance: PROPRANOLOL HYDROCHLORIDE
  3. GEMFIBROZIL. [Concomitant]
     Active Substance: GEMFIBROZIL
  4. VITAMIN B [Concomitant]
     Active Substance: VITAMIN B
  5. EQUATE SUPPORT MOISTURE LUBRICANT EYE [Suspect]
     Active Substance: PROPYLENE GLYCOL
     Indication: DRY EYE
     Route: 047
     Dates: start: 20190614, end: 20190711
  6. FLONASE [Concomitant]
     Active Substance: FLUTICASONE PROPIONATE
  7. MAGNESIUM [Concomitant]
     Active Substance: MAGNESIUM
  8. METFORMIN [Concomitant]
     Active Substance: METFORMIN HYDROCHLORIDE
  9. GLIPIZIDE. [Concomitant]
     Active Substance: GLIPIZIDE
  10. MONTELUKAST [Concomitant]
     Active Substance: MONTELUKAST SODIUM
  11. ENALAPRIL [Concomitant]
     Active Substance: ENALAPRIL

REACTIONS (4)
  - Headache [None]
  - Recalled product administered [None]
  - Instillation site pain [None]
  - Vision blurred [None]

NARRATIVE: CASE EVENT DATE: 20190710
